FAERS Safety Report 5372918-7 (Version None)
Quarter: 2007Q2

REPORT INFORMATION
  Report Type: 
  Country: None (occurrence: None)
  Receive Date: 20070621
  Receipt Date: 20070322
  Transmission Date: 20071010
  Serious: Yes (Other)
  Sender: FDA-Public Use
  Company Number: US-CVT-070076

PATIENT
  Age: 83 Year
  Sex: Female

DRUGS (16)
  1. RANEXA [Suspect]
     Indication: ANGINA PECTORIS
     Dosage: 500 MG, QD, ORAL; 500 MG, BID, ORAL; 1000 MG, BID, ORAL; 500 MG, QID, ORAL
     Route: 048
     Dates: start: 20061227, end: 20070301
  2. RANEXA [Suspect]
     Indication: ANGINA PECTORIS
     Dosage: 500 MG, QD, ORAL; 500 MG, BID, ORAL; 1000 MG, BID, ORAL; 500 MG, QID, ORAL
     Route: 048
     Dates: start: 20070302, end: 20070314
  3. RANEXA [Suspect]
     Indication: ANGINA PECTORIS
     Dosage: 500 MG, QD, ORAL; 500 MG, BID, ORAL; 1000 MG, BID, ORAL; 500 MG, QID, ORAL
     Route: 048
     Dates: start: 20070315
  4. LIPITOR [Concomitant]
  5. NIFEREX (POLYSACCHARIDE-IRON COMPLEX) [Concomitant]
  6. METFORMIN /00082701/ (METFORMIN) [Concomitant]
  7. DETROL /01350201/ (TOLTERODINE) [Concomitant]
  8. ASPIRIN [Concomitant]
  9. PLAVIX [Concomitant]
  10. LISINOPRIL/00894001/ (LISINOPRIL) [Concomitant]
  11. COREG [Concomitant]
  12. PROTONIX /01263201/ (PANTOPRAZOLE) [Concomitant]
  13. NTG (GLCYERL TRINITRATE) [Concomitant]
  14. CALCIUM /00009901/ (CALCIUM CARBONATE, CALCIUM LACTOGLUCONATE) [Concomitant]
  15. B-COMPLEX (VITAMINS B NOS) [Concomitant]
  16. MVI (VITAMINS NOS) [Concomitant]

REACTIONS (1)
  - NAUSEA [None]
